FAERS Safety Report 7935749 (Version 2)
Quarter: 2013Q4

REPORT INFORMATION
  Report Type: Report from Study
  Country: US (occurrence: US)
  Receive Date: 20110509
  Receipt Date: 20131002
  Transmission Date: 20140711
  Serious: Yes (Hospitalization, Other)
  Sender: FDA-Public Use
  Company Number: US-ALEXION-A201000627

PATIENT
  Age: 17 Year
  Sex: Female

DRUGS (6)
  1. SOLIRIS [Suspect]
     Indication: APLASTIC ANAEMIA
     Dosage: 900 MG, UNK
     Route: 042
     Dates: start: 20100525
  2. SOLIRIS [Suspect]
     Indication: PAROXYSMAL NOCTURNAL HAEMOGLOBINURIA
  3. SOLIRIS [Suspect]
     Indication: OFF LABEL USE
  4. NEORAL [Suspect]
     Indication: APLASTIC ANAEMIA
     Dosage: 200 MG, BID
     Route: 048
     Dates: start: 20100517, end: 20100602
  5. ATGAM [Concomitant]
     Indication: APLASTIC ANAEMIA
     Dosage: 3200 MG, QD
     Route: 042
     Dates: start: 20100517, end: 201005
  6. METHYLPREDNISOLONE [Concomitant]
     Indication: AUTOLOGOUS BONE MARROW TRANSPLANTATION THERAPY
     Dosage: 60 MG, BID (Q 12H) X 8 DOSES
     Route: 042
     Dates: end: 20100602

REACTIONS (8)
  - Gait disturbance [Recovered/Resolved]
  - Dysstasia [Not Recovered/Not Resolved]
  - Platelet count decreased [None]
  - Spinal deformity [None]
  - Post transplant distal limb syndrome [Not Recovered/Not Resolved]
  - Serum sickness [Not Recovered/Not Resolved]
  - Pain in extremity [Recovered/Resolved]
  - Hyperaesthesia [Recovered/Resolved]
